FAERS Safety Report 25236214 (Version 1)
Quarter: 2025Q2

REPORT INFORMATION
  Report Type: Spontaneous
  Country: CN (occurrence: CN)
  Receive Date: 20250424
  Receipt Date: 20250424
  Transmission Date: 20250717
  Serious: Yes (Other)
  Sender: SANOFI AVENTIS
  Company Number: CN-SA-2025SA119387

PATIENT
  Age: 58 Year
  Sex: Male
  Weight: 65 kg

DRUGS (3)
  1. CLOPIDOGREL BISULFATE [Suspect]
     Active Substance: CLOPIDOGREL BISULFATE
     Indication: Antiplatelet therapy
     Dosage: 300 MG, QD
     Route: 048
     Dates: start: 20250417, end: 20250417
  2. TICAGRELOR [Suspect]
     Active Substance: TICAGRELOR
     Indication: Antiplatelet therapy
     Dosage: 180 MG, QD
     Route: 048
     Dates: start: 20250417, end: 20250417
  3. ASPIRIN [Concomitant]
     Active Substance: ASPIRIN
     Dates: start: 20250417

REACTIONS (2)
  - Regurgitation [Recovered/Resolved]
  - Nausea [Recovering/Resolving]

NARRATIVE: CASE EVENT DATE: 20250417
